FAERS Safety Report 5090022-2 (Version None)
Quarter: 2006Q3

REPORT INFORMATION
  Report Type: 
  Country: None (occurrence: None)
  Receive Date: 20060823
  Receipt Date: 20060810
  Transmission Date: 20061208
  Serious: Yes (Hospitalization, Other)
  Sender: FDA-Public Use
  Company Number: 2006062505

PATIENT
  Sex: Female
  Weight: 95.2554 kg

DRUGS (8)
  1. CELEBREX [Suspect]
     Indication: SPINAL OSTEOARTHRITIS
     Dosage: 400 MG (200 MG, 2 IN 1 D), UNKNOWN
     Dates: end: 20040101
  2. NIFEDIPINE [Suspect]
     Indication: HYPERTENSION
     Dosage: 60 MG (60 MG, 1 IN 1 D), UNKNOWN
  3. MOTRIN [Suspect]
     Indication: SPINAL OSTEOARTHRITIS
     Dosage: 2400 MG (800 MG, 3 IN 1 D), UNKNOWN
     Dates: start: 20040101
  4. PERCOCET [Concomitant]
  5. SOMA [Concomitant]
  6. CLONIDINE [Concomitant]
  7. LISINOPRIL [Concomitant]
  8. BUMEX [Concomitant]

REACTIONS (4)
  - HYPERTENSION [None]
  - MYOCARDIAL INFARCTION [None]
  - TOOTH DISORDER [None]
  - WEIGHT DECREASED [None]
